FAERS Safety Report 26166190 (Version 1)
Quarter: 2025Q4

REPORT INFORMATION
  Report Type: Spontaneous
  Country: EU (occurrence: EU)
  Receive Date: 20251216
  Receipt Date: 20251216
  Transmission Date: 20260117
  Serious: Yes (Hospitalization, Other)
  Sender: CHEPLAPHARM
  Company Number: None

PATIENT
  Age: 55 Year
  Sex: Male
  Weight: 59 kg

DRUGS (22)
  1. OLANZAPINE [Suspect]
     Active Substance: OLANZAPINE
     Indication: Restlessness
     Dosage: MG AT NIGHT, WITH THE OPTION TO TAKE A RESCUE DOSE; OLANZAPINE 5 MG 100 TABLETS
     Route: 048
     Dates: start: 20250814, end: 20251101
  2. OLANZAPINE [Suspect]
     Active Substance: OLANZAPINE
     Indication: Agitation
     Dosage: MG AT NIGHT, WITH THE OPTION TO TAKE A RESCUE DOSE; OLANZAPINE 5 MG 100 TABLETS
     Route: 048
     Dates: start: 20250814, end: 20251101
  3. OLANZAPINE [Suspect]
     Active Substance: OLANZAPINE
     Indication: Restlessness
     Dosage: 1 TABLET AT BREAKFAST AND LUNCH AND 2 TABLETS AT DINNER?DAILY DOSE: 20 MILLIGRAM
     Route: 048
     Dates: start: 20251102
  4. OLANZAPINE [Suspect]
     Active Substance: OLANZAPINE
     Indication: Agitation
     Dosage: 1 TABLET AT BREAKFAST AND LUNCH AND 2 TABLETS AT DINNER?DAILY DOSE: 20 MILLIGRAM
     Route: 048
     Dates: start: 20251102
  5. SERTRALINE [Suspect]
     Active Substance: SERTRALINE HYDROCHLORIDE
     Indication: Depressed mood
     Dosage: 50 MG IN THE MORNING?DAILY DOSE: 50 MILLIGRAM
     Route: 048
     Dates: start: 20250814, end: 20251114
  6. LORAZEPAM [Suspect]
     Active Substance: LORAZEPAM
     Indication: Insomnia
     Dosage: 1 MG AT NIGHT?DAILY DOSE: 1 MILLIGRAM
     Route: 048
     Dates: start: 20251026, end: 20251114
  7. LEVOMEPROMAZINE [Suspect]
     Active Substance: LEVOMEPROMAZINE
     Indication: Agitation
     Dosage: 1 AMPOULE ORALLY AT NIGHT; 1 AS NECESSARY; 1 AMPOULE 25 ML AT NIGHT ?DAILY DOSE: 25 MILLILITRE
     Route: 048
     Dates: start: 20251026
  8. AMLODIPINE [Suspect]
     Active Substance: AMLODIPINE BESYLATE
     Indication: Hypertension
     Dosage: AS NEEDED FOR HIGH BLOOD PRESSURE
  9. ACETAMINOPHEN [Suspect]
     Active Substance: ACETAMINOPHEN
     Indication: Toxicity to various agents
     Dosage: 1 TABLET EVERY 8 HOURS FOR PAIN?DAILY DOSE: 3 DOSAGE FORM
  10. ACETAMINOPHEN [Suspect]
     Active Substance: ACETAMINOPHEN
     Indication: Pain
     Dosage: 1 TABLET EVERY 8 HOURS FOR PAIN?DAILY DOSE: 3 DOSAGE FORM
  11. ERYTHROPOIETIN [Suspect]
     Active Substance: ERYTHROPOIETIN
     Dosage: 8,000 IU M-W-S
  12. VENOFER [Suspect]
     Active Substance: IRON SUCROSE
     Dosage: W-S
  13. TOUJEO [Suspect]
     Active Substance: INSULIN GLARGINE
  14. NOVORAPID [Suspect]
     Active Substance: INSULIN ASPART
     Dosage: (2-2-2-2); RAPID-ACTING (10 IU)
  15. FAMOTIDINE [Suspect]
     Active Substance: FAMOTIDINE
     Dosage: 1 TABLET IN THE MORNING?DAILY DOSE: 1 DOSAGE FORM
  16. LEVOTHYROXINE [Suspect]
     Active Substance: LEVOTHYROXINE
     Dosage: 1 TABLET IN THE MORNING?DAILY DOSE: 1 DOSAGE FORM
  17. PANCRELIPASE [Suspect]
     Active Substance: PANCRELIPASE
     Dosage: 2 CAPSULES EVERY 8 HOURS?DAILY DOSE: 6 DOSAGE FORM
  18. SPIRIVA [Suspect]
     Active Substance: TIOTROPIUM BROMIDE MONOHYDRATE
     Dosage: 2 INHALATIONS IN THE MORNING?DAILY DOSE: 2 DOSAGE FORM
     Route: 055
  19. FOLIC ACID [Suspect]
     Active Substance: FOLIC ACID
     Dosage: 1 TABLET IN THE MORNING?DAILY DOSE: 1 DOSAGE FORM
  20. METHADONE HYDROCHLORIDE [Suspect]
     Active Substance: METHADONE HYDROCHLORIDE
     Indication: Pain
     Dosage: 1 TABLET EVERY 8 HOURS FOR PAIN?DAILY DOSE: 3 DOSAGE FORM
  21. CALCIUM POLYSTYRENE SULFONATE [Suspect]
     Active Substance: CALCIUM POLYSTYRENE SULFONATE
     Dosage: 1 SACHET WITH BREAKFAST
  22. TRAMADOL [Suspect]
     Active Substance: TRAMADOL
     Dosage: 1 CAPSULE IF NEEDED FOR PAIN

REACTIONS (9)
  - Hepatic cytolysis [Recovered/Resolved]
  - Staphylococcal bacteraemia [Unknown]
  - Thrombophlebitis septic [Unknown]
  - Depressed level of consciousness [Unknown]
  - Thrombocytopenia [Unknown]
  - Osteomyelitis [Unknown]
  - Decubitus ulcer [Unknown]
  - General physical health deterioration [Unknown]
  - Off label use [Recovered/Resolved]

NARRATIVE: CASE EVENT DATE: 20250814
